FAERS Safety Report 10262983 (Version 2)
Quarter: 2014Q2

REPORT INFORMATION
  Report Type: Report from Study
  Country: US (occurrence: US)
  Receive Date: 20140626
  Receipt Date: 20140626
  Transmission Date: 20141212
  Serious: Yes (Life-Threatening, Other)
  Sender: FDA-Public Use
  Company Number: US-MYLANLABS-2013S1024945

PATIENT
  Age: 67 Year
  Sex: Male
  Weight: 61.69 kg

DRUGS (8)
  1. CLOZAPINE TABLETS [Suspect]
     Indication: BIPOLAR DISORDER
     Route: 048
  2. CLOZAPINE TABLETS [Suspect]
     Indication: PSYCHOTIC DISORDER
     Route: 048
  3. CLOZAPINE TABLETS [Suspect]
     Indication: BIPOLAR DISORDER
     Route: 048
     Dates: start: 200207, end: 201312
  4. CLOZAPINE TABLETS [Suspect]
     Indication: PSYCHOTIC DISORDER
     Route: 048
     Dates: start: 200207, end: 201312
  5. ASPIRIN [Concomitant]
  6. FLONASE /00908302/ [Concomitant]
     Dosage: 1 EACH NOSTRIL
     Route: 045
  7. LEVOTHYROXINE [Concomitant]
  8. CHLORTRIMETON [Concomitant]
     Dosage: PRN

REACTIONS (1)
  - Granulocytopenia [Not Recovered/Not Resolved]
